FAERS Safety Report 4627509-X (Version None)
Quarter: 2005Q2

REPORT INFORMATION
  Report Type: 
  Country: None (occurrence: None)
  Receive Date: 20050401
  Receipt Date: 20050319
  Transmission Date: 20051028
  Serious: Yes (Hospitalization, Other)
  Sender: FDA-Public Use
  Company Number: 2005043431

PATIENT
  Age: 68 Year
  Sex: Male
  Weight: 104.3273 kg

DRUGS (6)
  1. CELEBREX [Suspect]
     Indication: ARTHRITIS
     Dosage: 200 MG (200 MG, 1 IN 1 D), ORAL
     Route: 048
     Dates: end: 20041201
  2. DILANTIN [Suspect]
     Indication: CONVULSION
     Dosage: 600 MG (100 MG, 3 CAPS, 2 IN 1 D), ORAL
     Route: 048
  3. PHENYTOIN [Suspect]
     Indication: CONVULSION
  4. ATENOLOL [Concomitant]
  5. ISOSORBIDE DINITRATE [Concomitant]
  6. ASPIRIN [Concomitant]

REACTIONS (13)
  - ANGIOPLASTY [None]
  - APLASIA [None]
  - ARTERIAL INJURY [None]
  - CONVULSION [None]
  - FLUID RETENTION [None]
  - GINGIVAL BLEEDING [None]
  - MYOCARDIAL INFARCTION [None]
  - NERVE INJURY [None]
  - PHARMACEUTICAL PRODUCT COMPLAINT [None]
  - PITUITARY TUMOUR BENIGN [None]
  - PROCEDURAL COMPLICATION [None]
  - RESPIRATORY ARREST [None]
  - TOOTH LOSS [None]
